FAERS Safety Report 9034403 (Version 1)
Quarter: 2013Q1

REPORT INFORMATION
  Report Type: Spontaneous
  Country: US (occurrence: US)
  Receive Date: 20130128
  Receipt Date: 20130128
  Transmission Date: 20140127
  Serious: Yes (Life-Threatening, Hospitalization)
  Sender: FDA-Public Use
  Company Number: US-AMGEN-US067980

PATIENT
  Age: 61 Year
  Sex: Male

DRUGS (13)
  1. ENBREL [Suspect]
     Indication: RHEUMATOID ARTHRITIS
     Dosage: 25 MG, 2 TIMES/WK
     Route: 058
     Dates: start: 20030314, end: 200312
  2. METHOTREXATE [Suspect]
     Dosage: 20 MG, QWK
  3. DEXTROPROPOXYPHENE NAPSILATE W/ ACETOMINOPHEN [Concomitant]
     Dosage: UNK UNK, PRN
  4. LISINOPRIL [Concomitant]
  5. ACETYLSALICYLIC ACID [Concomitant]
  6. METOPROLOL SUCCINATE [Concomitant]
  7. PRINZIDE [Concomitant]
  8. GLIBENCLAMIDE [Concomitant]
  9. CLOPIDOGREL BISULFATE [Concomitant]
  10. SERTRALINE HYDROCHLORIDE [Concomitant]
  11. RANITIDINE HYDROCHLORIDE [Concomitant]
  12. SIMVASTATIN [Concomitant]
  13. ISOSORBIDE [Concomitant]

REACTIONS (2)
  - Endocarditis [Recovered/Resolved]
  - Streptococcal infection [Recovered/Resolved]
